FAERS Safety Report 18594201 (Version 1)
Quarter: 2020Q4

REPORT INFORMATION
  Report Type: Spontaneous
  Country: GB (occurrence: GB)
  Receive Date: 20201209
  Receipt Date: 20201209
  Transmission Date: 20210114
  Serious: Yes (Hospitalization, Other)
  Sender: FDA-Public Use
  Company Number: GB-JNJFOC-20201206343

PATIENT
  Age: 88 Year
  Sex: Male
  Weight: 85 kg

DRUGS (15)
  1. CASSIA SENNA [Concomitant]
     Active Substance: HERBALS\SENNOSIDES
     Dosage: 7.5 MG, QD, AT NIGHT
     Dates: start: 20200909
  2. DIPROBASE [PARAFFIN, LIQUID;WHITE SOFT PARAFFIN] [Concomitant]
     Dosage: APPLY FREQUENTLY TO AFFECTED AREAS TO SETTLE ITCHING
     Dates: start: 20200821
  3. FLUCLOXACILLIN [Concomitant]
     Active Substance: FLUCLOXACILLIN
     Dosage: 1600 MG, QD
     Dates: start: 20200814
  4. CARBOCISTEINE [Concomitant]
     Active Substance: CARBOCYSTEINE
     Dosage: 1500 MG, QD
     Dates: start: 20200909
  5. ATORVASTATIN [Concomitant]
     Active Substance: ATORVASTATIN
     Dosage: 40 MG, QD
     Dates: start: 20201021
  6. ULTIBRO BREEZHALER [Concomitant]
     Active Substance: GLYCOPYRRONIUM\INDACATEROL
     Dosage: 1 DF, QD, INHALE THE CONTENTS OF 1 CAPSULE ONCE EACH DAY
     Route: 055
     Dates: start: 20200909
  7. BUMETANIDE. [Concomitant]
     Active Substance: BUMETANIDE
     Dosage: 1 MG, QD, IN THE MORNING
     Dates: start: 20200909
  8. BETNOVATE [Concomitant]
     Active Substance: BETAMETHASONE
     Dosage: 2 DF, QD, APPLY SPARINGLY
     Dates: start: 20200821
  9. DOXYCYCLINE. [Concomitant]
     Active Substance: DOXYCYCLINE
     Dosage: 200 MG, QD
     Dates: start: 20200910
  10. PHENOXYMETHYLPENICILLIN [Concomitant]
     Active Substance: PENICILLIN V
     Dosage: 8 DF, QD
     Dates: start: 20200817
  11. GLYCERYL TRINITRATE [Concomitant]
     Active Substance: NITROGLYCERIN
     Indication: CHEST PAIN
     Dosage: USE ONE OR TWO SPRAYS UNDER THE TONGUE WHEN REQUIRED FOR CHEST FOR FOR PAIN
     Route: 060
     Dates: start: 20200909, end: 20201021
  12. LACTULOSE. [Concomitant]
     Active Substance: LACTULOSE
     Dosage: 20 ML, QD
     Route: 048
     Dates: start: 20200909, end: 20201021
  13. CHLORPHENAMINE [Concomitant]
     Active Substance: CHLORPHENIRAMINE MALEATE
     Dosage: 1 TABLET FOUR TO SIX HOURLY WHEN REQUIRED
     Dates: start: 20200821, end: 20201021
  14. XARELTO [Suspect]
     Active Substance: RIVAROXABAN
     Indication: THROMBOSIS PROPHYLAXIS
     Dosage: 15 MG AND 20 MG CAPSULES. IN THE MORNING.
     Route: 048
     Dates: start: 20200909, end: 20201110
  15. SALBUTAMOL [Concomitant]
     Active Substance: ALBUTEROL
     Dosage: 2 DF
     Route: 055
     Dates: start: 20200909, end: 20201021

REACTIONS (2)
  - Skin reaction [Unknown]
  - Transient ischaemic attack [Recovered/Resolved]

NARRATIVE: CASE EVENT DATE: 20201109
